FAERS Safety Report 21028594 (Version 1)
Quarter: 2022Q2

REPORT INFORMATION
  Report Type: Spontaneous
  Country: US (occurrence: None)
  Receive Date: 20220630
  Receipt Date: 20220630
  Transmission Date: 20220721
  Serious: Yes (Hospitalization)
  Sender: FDA-Public Use
  Company Number: None

PATIENT
  Age: 23 Year
  Sex: Female

DRUGS (2)
  1. PULMOZYME [Suspect]
     Active Substance: DORNASE ALFA
     Indication: Infective pulmonary exacerbation of cystic fibrosis
     Dosage: 2.5 MG/2.5ML INHALATION?INHALE 2.5 ML (2.5 MG TOTAL) VIA NEBULIZATION 2 TIMES A DAY?
     Route: 055
     Dates: start: 20220202
  2. ZOLOFT [Concomitant]
     Active Substance: SERTRALINE HYDROCHLORIDE

REACTIONS (1)
  - Rehabilitation therapy [None]

NARRATIVE: CASE EVENT DATE: 20220614
